APPROVED DRUG PRODUCT: COLCHICINE
Active Ingredient: COLCHICINE
Strength: 0.6MG
Dosage Form/Route: CAPSULE;ORAL
Application: A208678 | Product #001 | TE Code: AB
Applicant: PH HEALTH LTD
Approved: Nov 29, 2018 | RLD: No | RS: No | Type: RX